FAERS Safety Report 8291216-5 (Version None)
Quarter: 2012Q2

REPORT INFORMATION
  Report Type: 
  Country: None (occurrence: None)
  Receive Date: 20120417
  Receipt Date: 20120409
  Transmission Date: 20120825
  Serious: Yes (Hospitalization)
  Sender: FDA-Public Use
  Company Number: US-BAYER-201030007NA

PATIENT
  Age: 19 Year
  Sex: Female
  Weight: 77.098 kg

DRUGS (4)
  1. YAZ [Suspect]
     Indication: CONTRACEPTION
     Dosage: UNK UNK, UNK
     Route: 048
     Dates: start: 20061201, end: 20070706
  2. TYLENOL WITH CODEIN #3 [Concomitant]
     Dosage: UNK
     Route: 048
     Dates: start: 20070705
  3. MOTRIN [Concomitant]
     Dosage: UNK
     Route: 048
  4. YASMIN [Suspect]
     Dosage: UNK

REACTIONS (3)
  - PYREXIA [None]
  - CHEST PAIN [None]
  - PULMONARY EMBOLISM [None]
